FAERS Safety Report 11458758 (Version 1)
Quarter: 2015Q3

REPORT INFORMATION
  Report Type: Spontaneous
  Country: US (occurrence: None)
  Receive Date: 20150903
  Receipt Date: 20150903
  Transmission Date: 20151125
  Serious: No
  Sender: FDA-Public Use
  Company Number: None

PATIENT
  Age: 52 Year
  Sex: Male
  Weight: 64.41 kg

DRUGS (9)
  1. TRUVADA [Suspect]
     Active Substance: EMTRICITABINE\TENOFOVIR DISOPROXIL FUMARATE
     Indication: HIV INFECTION
     Route: 048
     Dates: start: 20150729, end: 20150901
  2. OTEZLA [Concomitant]
     Active Substance: APREMILAST
  3. VITAMIN D [Concomitant]
     Active Substance: CHOLECALCIFEROL
  4. METHOTREXATE [Concomitant]
     Active Substance: METHOTREXATE
  5. TRUVADA [Suspect]
     Active Substance: EMTRICITABINE\TENOFOVIR DISOPROXIL FUMARATE
     Indication: PROPHYLAXIS
     Route: 048
     Dates: start: 20150729, end: 20150901
  6. AMBIEN [Concomitant]
     Active Substance: ZOLPIDEM TARTRATE
  7. RESTASIS [Concomitant]
     Active Substance: CYCLOSPORINE
  8. PLAQUENIL [Concomitant]
     Active Substance: HYDROXYCHLOROQUINE SULFATE
  9. FOLIC ACID. [Concomitant]
     Active Substance: FOLIC ACID

REACTIONS (8)
  - Dizziness [None]
  - Fatigue [None]
  - Insomnia [None]
  - Impaired work ability [None]
  - Nausea [None]
  - Pruritus [None]
  - Hypoaesthesia [None]
  - Vomiting [None]

NARRATIVE: CASE EVENT DATE: 20150902
